FAERS Safety Report 9410786 (Version 2)
Quarter: 2013Q3

REPORT INFORMATION
  Report Type: Report from Study
  Country: DE (occurrence: DE)
  Receive Date: 20130719
  Receipt Date: 20130808
  Transmission Date: 20140515
  Serious: Yes (Hospitalization)
  Sender: FDA-Public Use
  Company Number: DE-ABBOTT-13P-062-1119516-00

PATIENT
  Sex: Female

DRUGS (2)
  1. HUMIRA [Suspect]
     Indication: COLITIS ULCERATIVE
     Route: 058
     Dates: start: 20130208, end: 20130625
  2. HUMIRA [Suspect]
     Route: 058
     Dates: start: 20130730

REACTIONS (4)
  - General physical health deterioration [Recovering/Resolving]
  - Sepsis [Recovering/Resolving]
  - Pyelonephritis [Recovering/Resolving]
  - Pyrexia [Recovering/Resolving]
